FAERS Safety Report 9245068 (Version 1)
Quarter: 2013Q2

REPORT INFORMATION
  Report Type: Spontaneous
  Country: US (occurrence: US)
  Receive Date: 20130422
  Receipt Date: 20130422
  Transmission Date: 20140414
  Serious: Yes (Hospitalization)
  Sender: FDA-Public Use
  Company Number: PHBS2004US10522

PATIENT
  Age: 33 Year
  Sex: Male

DRUGS (8)
  1. CLOZAPINE [Suspect]
     Indication: SCHIZOPHRENIA, PARANOID TYPE
     Dosage: 25 MG, QD, HS
  2. CLOZAPINE [Suspect]
     Dosage: TITRATED TO 100 MG
  3. VALPROIC ACID [Concomitant]
     Indication: SCHIZOPHRENIA, PARANOID TYPE
     Dosage: 1500 MG, QD, HS
  4. VALPROIC ACID [Concomitant]
     Dosage: 500 MG, BID
  5. ZIPRASIDONE [Concomitant]
     Indication: SCHIZOPHRENIA, PARANOID TYPE
     Dosage: 80 MG, BID
  6. GABAPENTIN [Concomitant]
     Indication: SCHIZOPHRENIA, PARANOID TYPE
     Dosage: 800 MG, TID
  7. GABAPENTIN [Concomitant]
     Dosage: 400 MG AM; 800MG HS
  8. RISPERIDONE [Concomitant]
     Indication: SCHIZOPHRENIA, PARANOID TYPE
     Dosage: 2 MG, QD, HS

REACTIONS (15)
  - Oropharyngeal pain [Unknown]
  - Pyrexia [Unknown]
  - Glomerulonephritis [Recovering/Resolving]
  - Urinary tract infection [Unknown]
  - Blood sodium decreased [Unknown]
  - Renal failure acute [Recovering/Resolving]
  - Blood urea increased [Recovering/Resolving]
  - Blood creatinine increased [Recovering/Resolving]
  - Tubulointerstitial nephritis [Recovering/Resolving]
  - Diarrhoea [Unknown]
  - Urine analysis abnormal [Unknown]
  - Eosinophil count increased [Not Recovered/Not Resolved]
  - White blood cell count increased [Not Recovered/Not Resolved]
  - Nausea [Unknown]
  - Vomiting [Unknown]
